FAERS Safety Report 20900648 (Version 1)
Quarter: 2022Q2

REPORT INFORMATION
  Report Type: Report from Study
  Country: US (occurrence: US)
  Receive Date: 20220601
  Receipt Date: 20220601
  Transmission Date: 20220721
  Serious: Yes (Hospitalization, Other)
  Sender: FDA-Public Use
  Company Number: US-AMGEN-USACT2022000001

PATIENT
  Age: 19 Year
  Sex: Female
  Weight: 57.5 kg

DRUGS (4)
  1. BLINATUMOMAB [Suspect]
     Active Substance: BLINATUMOMAB
     Indication: B precursor type acute leukaemia
     Dosage: TOTAL DOSE: 344 MICROGRAM
     Route: 065
     Dates: start: 20210830
  2. BLINATUMOMAB [Suspect]
     Active Substance: BLINATUMOMAB
     Dosage: TOTAL DOSE: 344 MICROGRAM
     Route: 065
     Dates: start: 20210924
  3. DEXAMETHASONE [Suspect]
     Active Substance: DEXAMETHASONE
     Indication: B precursor type acute leukaemia
     Dosage: TOTAL DOSE: 16 MG
     Route: 065
     Dates: start: 20210830, end: 20210906
  4. METHOTREXATE [Suspect]
     Active Substance: METHOTREXATE
     Indication: B precursor type acute leukaemia
     Dosage: TOTAL DOSE: 30 MG
     Route: 065
     Dates: start: 20210830, end: 20210913

REACTIONS (4)
  - Serum sickness [Recovered/Resolved]
  - Periorbital oedema [Recovered/Resolved]
  - Myalgia [Recovered/Resolved]
  - Cytokine release syndrome [Recovered/Resolved]

NARRATIVE: CASE EVENT DATE: 20210910
